FAERS Safety Report 8401754-X (Version None)
Quarter: 2012Q2

REPORT INFORMATION
  Report Type: 
  Country: None (occurrence: None)
  Receive Date: 20120601
  Receipt Date: 20120524
  Transmission Date: 20120825
  Serious: Yes (Other)
  Sender: FDA-Public Use
  Company Number: US-JNJFOC-20120519320

PATIENT
  Sex: Female
  Weight: 52.16 kg

DRUGS (3)
  1. TRAMADOL HYDROCHLORIDE AND ACETAMINOPHEN [Suspect]
     Indication: ARTHRALGIA
     Dosage: 3 PER DAY
     Route: 048
  2. TRAMADOL HYDROCHLORIDE AND ACETAMINOPHEN [Suspect]
     Dosage: 37.5/325MG 1 PER DAY
     Route: 048
     Dates: start: 20100101, end: 20120524
  3. LEVOFLOXACIN [Concomitant]
     Indication: PNEUMONIA BACTERIAL
     Route: 048
     Dates: start: 20120429, end: 20120508

REACTIONS (10)
  - ABNORMAL LOSS OF WEIGHT [None]
  - PNEUMONIA BACTERIAL [None]
  - VISION BLURRED [None]
  - FEELING ABNORMAL [None]
  - ASTHENIA [None]
  - TREMOR [None]
  - THERAPEUTIC RESPONSE DECREASED [None]
  - DEMENTIA [None]
  - PAIN IN EXTREMITY [None]
  - NIGHTMARE [None]
